FAERS Safety Report 12957002 (Version 1)
Quarter: 2016Q4

REPORT INFORMATION
  Report Type: Spontaneous
  Country: US (occurrence: US)
  Receive Date: 20161118
  Receipt Date: 20161118
  Transmission Date: 20170207
  Serious: Yes (Hospitalization)
  Sender: FDA-Public Use
  Company Number: US-IMPAX LABORATORIES, INC-IMP_05993_2012

PATIENT
  Age: 23 Year
  Sex: Male
  Weight: 82 kg

DRUGS (12)
  1. LIDOCAINE. [Suspect]
     Active Substance: LIDOCAINE
     Indication: ARTHRALGIA
     Dosage: 2 % (1 PUMP DISPENSING 1 G OUT OF A 120 G CONTAINER),  UNK
     Route: 062
  2. MEFENAMIC ACID. [Suspect]
     Active Substance: MEFENAMIC ACID
     Indication: ARTHRALGIA
     Dosage: 1 % (1 PUMP DISPENSING 1 G OUT OF A 120 G CONTAINER), UNK
     Route: 062
  3. CLONAZEPAM. [Concomitant]
     Active Substance: CLONAZEPAM
     Indication: PRODUCT USED FOR UNKNOWN INDICATION
     Dosage: UNK
     Route: 065
  4. OXYCODONE/ACETAMINOPHEN [Concomitant]
     Active Substance: ACETAMINOPHEN\OXYCODONE HYDROCHLORIDE
     Indication: PRODUCT USED FOR UNKNOWN INDICATION
     Dosage: UNK
     Route: 065
  5. IMIPRAMINE [Suspect]
     Active Substance: IMIPRAMINE
     Indication: ARTHRALGIA
     Dosage: 3 % (1 PUMP DISPENSING 1 G OUT OF A 120 G CONTAINER), UNK
     Route: 062
  6. DULOXETINE. [Concomitant]
     Active Substance: DULOXETINE
     Indication: PRODUCT USED FOR UNKNOWN INDICATION
     Dosage: UNK
     Route: 065
  7. ADDERALL [Concomitant]
     Active Substance: AMPHETAMINE ASPARTATE\AMPHETAMINE SULFATE\DEXTROAMPHETAMINE SACCHARATE\DEXTROAMPHETAMINE SULFATE
     Indication: PRODUCT USED FOR UNKNOWN INDICATION
     Route: 065
  8. GABAPENTIN. [Suspect]
     Active Substance: GABAPENTIN
     Indication: ARTHRALGIA
     Dosage: 6 % (1 PUMP DISPENSING 1 G OUT OF A 120 G CONTAINER), UNK
     Route: 062
  9. ARIPIPRAZOLE. [Concomitant]
     Active Substance: ARIPIPRAZOLE
     Indication: PRODUCT USED FOR UNKNOWN INDICATION
     Route: 065
  10. CLONIDINE HYDROCHLORIDE. [Suspect]
     Active Substance: CLONIDINE HYDROCHLORIDE
     Indication: ARTHRALGIA
     Dosage: 0.2 % (1 PUMP DISPENSING 1 G OUT OF A 120 G CONTAINER), UNK
     Route: 062
  11. ZOLPIDEM [Concomitant]
     Active Substance: ZOLPIDEM\ZOLPIDEM TARTRATE
     Indication: PRODUCT USED FOR UNKNOWN INDICATION
     Dosage: UNK
     Route: 065
  12. KETAMINE [Suspect]
     Active Substance: KETAMINE
     Indication: ARTHRALGIA
     Dosage: 10 % (1 PUMP DISPENSING 1 G OUT OF A 120 G CONTAINER), UNK
     Route: 062

REACTIONS (10)
  - Drug administration error [Unknown]
  - Toxicity to various agents [Recovered/Resolved]
  - Overdose [Recovered/Resolved]
  - Mydriasis [Recovered/Resolved]
  - Dysarthria [Recovered/Resolved]
  - Depressed level of consciousness [Recovered/Resolved]
  - Subarachnoid haemorrhage [Recovered/Resolved]
  - Disorientation [Recovered/Resolved]
  - Hypertensive crisis [Recovered/Resolved]
  - Sinus bradycardia [Recovered/Resolved]
